FAERS Safety Report 21882074 (Version 1)
Quarter: 2023Q1

REPORT INFORMATION
  Report Type: Spontaneous
  Country: JP (occurrence: JP)
  Receive Date: 20230119
  Receipt Date: 20230119
  Transmission Date: 20230418
  Serious: Yes (Hospitalization, Other)
  Sender: FDA-Public Use
  Company Number: JP-CELLTRION INC.-2023JP001058

PATIENT

DRUGS (1)
  1. INFLIXIMAB [Suspect]
     Active Substance: INFLIXIMAB
     Indication: Crohn^s disease
     Dosage: INITIATED IN DECEMBER OF YEAR 202X-1
     Route: 065

REACTIONS (3)
  - Takayasu^s arteritis [Recovering/Resolving]
  - Loss of personal independence in daily activities [Unknown]
  - Intentional dose omission [Unknown]
